FAERS Safety Report 23824748 (Version 1)
Quarter: 2024Q2

REPORT INFORMATION
  Report Type: Report from Study
  Country: US (occurrence: US)
  Receive Date: 20240507
  Receipt Date: 20240507
  Transmission Date: 20240716
  Serious: Yes (Other)
  Sender: FDA-Public Use
  Company Number: US-TEVA-VS-3189710

PATIENT
  Age: 67 Year
  Sex: Male

DRUGS (6)
  1. AMOXICILLIN [Suspect]
     Active Substance: AMOXICILLIN
     Indication: Product used for unknown indication
     Route: 065
  2. AMOXICILLIN [Suspect]
     Active Substance: AMOXICILLIN
     Indication: Product used for unknown indication
     Route: 065
  3. ORGOVYX [Suspect]
     Active Substance: RELUGOLIX
     Indication: Prostate cancer
     Route: 048
     Dates: start: 20240201
  4. ORGOVYX [Suspect]
     Active Substance: RELUGOLIX
     Indication: Prostate cancer
     Route: 048
     Dates: start: 2024
  5. XTANDI [Concomitant]
     Active Substance: ENZALUTAMIDE
     Route: 065
     Dates: start: 20240201
  6. MIRALAX [Concomitant]
     Active Substance: POLYETHYLENE GLYCOL 3350
     Route: 065

REACTIONS (9)
  - Surgery [Unknown]
  - Erectile dysfunction [Unknown]
  - Hot flush [Unknown]
  - Back disorder [Unknown]
  - Arthropathy [Unknown]
  - Urine flow decreased [Unknown]
  - Pruritus [Unknown]
  - Dysuria [Unknown]
  - Constipation [Unknown]
